FAERS Safety Report 15783290 (Version 1)
Quarter: 2019Q1

REPORT INFORMATION
  Report Type: Spontaneous
  Country: US (occurrence: US)
  Receive Date: 20190102
  Receipt Date: 20190102
  Transmission Date: 20190417
  Serious: No
  Sender: FDA-Public Use
  Company Number: US-PFIZER INC-2018533499

PATIENT
  Age: 71 Year
  Sex: Female
  Weight: 49 kg

DRUGS (3)
  1. IBRANCE [Suspect]
     Active Substance: PALBOCICLIB
     Indication: BREAST CANCER FEMALE
     Dosage: 125 MG, 1X/DAY (AT 8 PM AT NIGHT BY MOUTH)
     Route: 048
     Dates: start: 20181204, end: 20181212
  2. QUETIAPINE. [Concomitant]
     Active Substance: QUETIAPINE
     Dosage: 200 MG, 1X/DAY (200 MG IN THE EVENING)
  3. QUETIAPINE. [Concomitant]
     Active Substance: QUETIAPINE
     Dosage: 500 MG, DAILY (200 MG IN THE MORNING AND 300 MG IN THE EVENING)

REACTIONS (1)
  - White blood cell count decreased [Recovering/Resolving]

NARRATIVE: CASE EVENT DATE: 201812
